FAERS Safety Report 9142608 (Version 1)
Quarter: 2013Q1

REPORT INFORMATION
  Report Type: Spontaneous
  Country: NL (occurrence: NL)
  Receive Date: 20130306
  Receipt Date: 20130306
  Transmission Date: 20140127
  Serious: Yes (Hospitalization)
  Sender: FDA-Public Use
  Company Number: NL-JNJFOC-20130300085

PATIENT
  Sex: Male

DRUGS (8)
  1. ZALDIAR [Suspect]
     Indication: MUSCULOSKELETAL PAIN
     Route: 048
     Dates: start: 20130129, end: 2013
  2. ZALDIAR [Suspect]
     Indication: MUSCULOSKELETAL PAIN
     Route: 048
     Dates: start: 2013
  3. ZALDIAR [Suspect]
     Indication: NECK PAIN
     Route: 048
     Dates: start: 20130129, end: 2013
  4. ZALDIAR [Suspect]
     Indication: NECK PAIN
     Route: 048
     Dates: start: 2013
  5. ZALDIAR [Suspect]
     Indication: HEADACHE
     Route: 048
     Dates: start: 20130129, end: 2013
  6. ZALDIAR [Suspect]
     Indication: HEADACHE
     Route: 048
     Dates: start: 2013
  7. LYRICA [Suspect]
     Indication: INSOMNIA
     Route: 048
     Dates: start: 201302
  8. AMITRIPTYLINE [Concomitant]
     Indication: PRODUCT USED FOR UNKNOWN INDICATION
     Route: 065

REACTIONS (1)
  - Psychotic disorder [Unknown]
